FAERS Safety Report 20736010 (Version 5)
Quarter: 2023Q1

REPORT INFORMATION
  Report Type: Report from Study
  Country: US (occurrence: US)
  Receive Date: 20220421
  Receipt Date: 20230312
  Transmission Date: 20230418
  Serious: No
  Sender: FDA-Public Use
  Company Number: US-NOVARTISTESTPH-NVSC2022US092648

PATIENT
  Sex: Female
  Weight: 45.351 kg

DRUGS (1)
  1. COSENTYX [Suspect]
     Active Substance: SECUKINUMAB
     Indication: Psoriasis
     Dosage: 75 MG (WEEKLY FOR 5 WEEKS, THEN ONCE EVERY 4 WEEKS)
     Route: 058
     Dates: start: 20220113

REACTIONS (3)
  - Eczema infected [Unknown]
  - Drug ineffective [Unknown]
  - Psoriasis [Unknown]
